FAERS Safety Report 7037268-1 (Version None)
Quarter: 2010Q4

REPORT INFORMATION
  Report Type: 
  Country: None (occurrence: None)
  Receive Date: 20101011
  Receipt Date: 20100928
  Transmission Date: 20110411
  Serious: Yes (Hospitalization)
  Sender: FDA-Public Use
  Company Number: US-ELI_LILLY_AND_COMPANY-US201009007922

PATIENT
  Sex: Male

DRUGS (14)
  1. FORTEO [Suspect]
     Dates: start: 20100628
  2. MULTI-VITAMIN [Concomitant]
  3. CALCIUM [Concomitant]
  4. NIACIN [Concomitant]
     Dosage: 500 MG, DAILY (1/D)
  5. VITAMIN D [Concomitant]
     Dosage: 50000 U, WEEKLY (1/W)
  6. PAXIL [Concomitant]
     Dosage: 10 MG, DAILY (1/D)
  7. XANAX [Concomitant]
     Dosage: 0.25 MG, DAILY (1/D)
  8. SODIUM BICARBONATE [Concomitant]
     Dosage: 650 MG, 3/D
  9. PLAVIX [Concomitant]
     Dosage: 75 MG, DAILY (1/D)
  10. PROCHLORPERAZINE [Concomitant]
     Dosage: 5 MG, AS NEEDED
  11. ZOCOR [Concomitant]
     Dosage: 10 MG, DAILY (1/D)
  12. PREVACID [Concomitant]
     Dosage: 15 MG, DAILY (1/D)
  13. ASPIRIN [Concomitant]
     Dosage: 81 MG, DAILY (1/D)
  14. MEGESTROL ACETATE [Concomitant]
     Dosage: 40 MG, DAILY (1/D)

REACTIONS (5)
  - ASTHENIA [None]
  - DECREASED APPETITE [None]
  - DEHYDRATION [None]
  - PAIN [None]
  - VOMITING [None]
